FAERS Safety Report 6464590-X (Version None)
Quarter: 2009Q4

REPORT INFORMATION
  Report Type: 
  Country: None (occurrence: None)
  Receive Date: 20091124
  Receipt Date: 20091109
  Transmission Date: 20100525
  Serious: Yes (Hospitalization)
  Sender: FDA-Public Use
  Company Number: 1-20688346

PATIENT
  Age: 11 Year
  Sex: Female
  Weight: 67.8581 kg

DRUGS (7)
  1. WARFARIN SODIUM [Suspect]
     Indication: THROMBOSIS
     Dosage: 5 MG QOD, ORAL
     Route: 048
  2. BIVALIRUDIN [Suspect]
     Indication: THROMBOSIS
     Dosage: 125 MCG/KG/HR, INTRAVENOUS
     Route: 042
  3. CEFAZOLIN [Suspect]
  4. RANITIDINE [Suspect]
  5. CHLORAL HYDRATE [Suspect]
     Dosage: ONCE
  6. ARGATROBAN [Suspect]
     Indication: THROMBOSIS
     Dosage: 2 MCG/KG/MIN, INTRAVENOUS
     Route: 042
  7. FONDAPARINUX SODIUM [Suspect]
     Indication: THROMBOSIS
     Dosage: 7.5 MG, DAILY, SUBCUTANEOUS
     Route: 058

REACTIONS (19)
  - ABDOMINAL PAIN [None]
  - ANXIETY [None]
  - DEEP VEIN THROMBOSIS [None]
  - DISEASE COMPLICATION [None]
  - DISEASE RECURRENCE [None]
  - HEPARIN-INDUCED THROMBOCYTOPENIA [None]
  - HYPERTENSION [None]
  - INTERNATIONAL NORMALISED RATIO INCREASED [None]
  - KLEBSIELLA SEPSIS [None]
  - PNEUMOTHORAX [None]
  - POST THROMBOTIC SYNDROME [None]
  - PULMONARY EMBOLISM [None]
  - PULMONARY HAEMORRHAGE [None]
  - PULMONARY HYPERTENSION [None]
  - RENAL FAILURE [None]
  - RENAL VEIN THROMBOSIS [None]
  - RESPIRATORY FAILURE [None]
  - THROMBOSIS IN DEVICE [None]
  - VENA CAVA THROMBOSIS [None]
